FAERS Safety Report 9692275 (Version 2)
Quarter: 2013Q4

REPORT INFORMATION
  Report Type: Spontaneous
  Country: US (occurrence: US)
  Receive Date: 20131118
  Receipt Date: 20131129
  Transmission Date: 20140711
  Serious: Yes (Other)
  Sender: FDA-Public Use
  Company Number: US-BRISTOL-MYERS SQUIBB COMPANY-19794437

PATIENT
  Age: 85 Year
  Sex: Female

DRUGS (2)
  1. WARFARIN SODIUM [Suspect]
     Indication: ATRIAL FIBRILLATION
     Route: 048
  2. PRADAXA [Suspect]

REACTIONS (8)
  - Transient ischaemic attack [Unknown]
  - Fatigue [Unknown]
  - Myalgia [Unknown]
  - Hepatic enzyme increased [Unknown]
  - Local swelling [Unknown]
  - Rash [Unknown]
  - Dry skin [Unknown]
  - Dyspnoea [Unknown]
